FAERS Safety Report 5757661-4 (Version None)
Quarter: 2008Q2

REPORT INFORMATION
  Report Type: 
  Country: None (occurrence: None)
  Receive Date: 20080603
  Receipt Date: 20080530
  Transmission Date: 20081010
  Serious: Yes (Hospitalization)
  Sender: FDA-Public Use
  Company Number: CA-MERCK-0806CAN00001

PATIENT
  Sex: Male

DRUGS (2)
  1. JANUVIA [Suspect]
     Indication: TYPE 2 DIABETES MELLITUS
     Route: 048
     Dates: start: 20080401
  2. METFORMIN [Concomitant]
     Route: 065

REACTIONS (5)
  - ANGINA PECTORIS [None]
  - GASTROENTERITIS [None]
  - INCREASED APPETITE [None]
  - PALPITATIONS [None]
  - TREMOR [None]
